FAERS Safety Report 21733853 (Version 2)
Quarter: 2022Q4

REPORT INFORMATION
  Report Type: Spontaneous
  Country: GB (occurrence: GB)
  Receive Date: 20221215
  Receipt Date: 20221223
  Transmission Date: 20230113
  Serious: Yes (Hospitalization)
  Sender: FDA-Public Use
  Company Number: GB-VERTEX PHARMACEUTICALS-2022-018693

PATIENT
  Sex: Female

DRUGS (2)
  1. ELEXACAFTOR\IVACAFTOR\TEZACAFTOR [Suspect]
     Active Substance: ELEXACAFTOR\IVACAFTOR\TEZACAFTOR
     Indication: Cystic fibrosis
     Dosage: 75 MG IVA/50MG TEZA/100MG ELEXA, TWO TABLETS IN THE MORNING
     Route: 048
     Dates: start: 202111
  2. KALYDECO [Suspect]
     Active Substance: IVACAFTOR
     Indication: Cystic fibrosis
     Dosage: UNK
     Route: 048
     Dates: start: 202111

REACTIONS (2)
  - Hospitalisation [Unknown]
  - Nasopharyngitis [Not Recovered/Not Resolved]
